FAERS Safety Report 24405512 (Version 1)
Quarter: 2024Q4

REPORT INFORMATION
  Report Type: Spontaneous
  Country: DE (occurrence: DE)
  Receive Date: 20241007
  Receipt Date: 20241007
  Transmission Date: 20250115
  Serious: Yes (Other)
  Sender: B BRAUN
  Company Number: DE-B.Braun Medical Inc.-2162574

PATIENT
  Sex: Male

DRUGS (1)
  1. HEPARIN SODIUM IN DEXTROSE [Suspect]
     Active Substance: HEPARIN SODIUM
     Indication: Artificial heart implant
     Dates: start: 20240528, end: 20240611

REACTIONS (2)
  - Thrombosis [Unknown]
  - Drug ineffective [Unknown]
